FAERS Safety Report 22106261 (Version 1)
Quarter: 2023Q1

REPORT INFORMATION
  Report Type: Spontaneous
  Country: US (occurrence: US)
  Receive Date: 20230317
  Receipt Date: 20230317
  Transmission Date: 20230417
  Serious: No
  Sender: FDA-Public Use
  Company Number: US-BRISTOL-MYERS SQUIBB COMPANY-2023-039160

PATIENT
  Age: 38 Year
  Sex: Female

DRUGS (2)
  1. SOTYKTU [Suspect]
     Active Substance: DEUCRAVACITINIB
     Indication: Psoriasis
     Route: 048
     Dates: start: 2023
  2. SOTYKTU [Suspect]
     Active Substance: DEUCRAVACITINIB
     Route: 048
     Dates: end: 202303

REACTIONS (2)
  - Mouth ulceration [Recovered/Resolved]
  - Mouth ulceration [Unknown]

NARRATIVE: CASE EVENT DATE: 20230201
